FAERS Safety Report 6495107-1 (Version None)
Quarter: 2009Q4

REPORT INFORMATION
  Report Type: 
  Country: None (occurrence: None)
  Receive Date: 20091214
  Receipt Date: 20090501
  Transmission Date: 20100525
  Serious: No
  Sender: FDA-Public Use
  Company Number: US-BRISTOL-MYERS SQUIBB COMPANY-14609119

PATIENT
  Age: 32 Year
  Sex: Male
  Weight: 114 kg

DRUGS (10)
  1. ABILIFY [Suspect]
     Indication: BIPOLAR DISORDER
     Dosage: INITIAL DOSE:5MG; INCREASED TO 30MG BY DEC08.
     Dates: start: 20080801
  2. ABILIFY [Suspect]
     Indication: SCHIZOPHRENIA
     Dosage: INITIAL DOSE:5MG; INCREASED TO 30MG BY DEC08.
     Dates: start: 20080801
  3. WELLBUTRIN [Concomitant]
  4. TOPAMAX [Concomitant]
  5. FAMOTIDINE [Concomitant]
  6. LOVASTATIN [Concomitant]
  7. MOEXIPRIL HCL [Concomitant]
  8. HYDROXYZINE [Concomitant]
  9. AMBIEN [Concomitant]
  10. MULTI-VITAMIN [Concomitant]

REACTIONS (1)
  - WEIGHT INCREASED [None]
